FAERS Safety Report 9956722 (Version 1)
Quarter: 2014Q1

REPORT INFORMATION
  Report Type: Report from Study
  Country: US (occurrence: US)
  Receive Date: 20140304
  Receipt Date: 20140304
  Transmission Date: 20141002
  Serious: No
  Sender: FDA-Public Use
  Company Number: US-ABBVIE-13P-163-1098696-00

PATIENT
  Age: 46 Year
  Sex: Female

DRUGS (7)
  1. HUMIRA [Suspect]
     Indication: COLITIS ULCERATIVE
     Dates: start: 20130430
  2. HUMIRA [Suspect]
     Dates: start: 20130514
  3. HUMIRA [Suspect]
     Dates: start: 20130528
  4. VIVELLE [Concomitant]
     Indication: OESTROGEN REPLACEMENT THERAPY
     Dosage: PATCH
  5. PATANASE [Concomitant]
     Indication: SINUS DISORDER
     Dosage: NASAL SPRAY: 1 SQUIRT EACH NOSTRIL
  6. FLUTICASONE [Concomitant]
     Indication: SINUS DISORDER
     Dosage: NASAL SPRAY: 1 SQUIRT EACH NOSTRIL DAILY
  7. ZYRTEC [Concomitant]
     Indication: HYPERSENSITIVITY

REACTIONS (2)
  - Injection site pain [Recovering/Resolving]
  - Injection site reaction [Recovering/Resolving]
